FAERS Safety Report 10718474 (Version 3)
Quarter: 2015Q1

REPORT INFORMATION
  Report Type: Spontaneous
  Country: US (occurrence: US)
  Receive Date: 20150119
  Receipt Date: 20150226
  Transmission Date: 20150721
  Serious: Yes (Hospitalization, Disabling)
  Sender: FDA-Public Use
  Company Number: US-LEO PHARMA-231876

PATIENT
  Age: 61 Year
  Sex: Female
  Weight: 57 kg

DRUGS (3)
  1. ALENDRONATE [Concomitant]
     Active Substance: ALENDRONATE SODIUM
     Indication: OSTEOPOROSIS
  2. BUPROPION [Concomitant]
     Active Substance: BUPROPION
     Indication: ANXIETY
  3. PICATO [Suspect]
     Active Substance: INGENOL MEBUTATE
     Indication: ACTINIC KERATOSIS
     Route: 061
     Dates: start: 20141229, end: 20141230

REACTIONS (7)
  - Visual impairment [Recovered/Resolved]
  - Accidental exposure to product [Recovered/Resolved]
  - Chemical burns of eye [Recovered/Resolved]
  - Drug administered at inappropriate site [Unknown]
  - Incorrect drug administration duration [Unknown]
  - Application site reaction [Recovered/Resolved]
  - Circumstance or information capable of leading to medication error [Recovered/Resolved]

NARRATIVE: CASE EVENT DATE: 20141231
